FAERS Safety Report 19583943 (Version 1)
Quarter: 2021Q3

REPORT INFORMATION
  Report Type: Spontaneous
  Country: BR (occurrence: BR)
  Receive Date: 20210720
  Receipt Date: 20210720
  Transmission Date: 20211014
  Serious: Yes (Other)
  Sender: FDA-Public Use
  Company Number: BR-PFIZER INC-2015211111

PATIENT
  Age: 60 Year
  Sex: Female
  Weight: 62 kg

DRUGS (5)
  1. CELEBRA [Concomitant]
     Active Substance: CELECOXIB
     Indication: BACK PAIN
     Dosage: 200 MG, 2X/DAY
     Dates: start: 2012
  2. OLMETEC HCT [Concomitant]
     Active Substance: HYDROCHLOROTHIAZIDE\OLMESARTAN MEDOXOMIL
     Dosage: UNK
  3. FRONTAL [Concomitant]
     Active Substance: ALPRAZOLAM
     Indication: SLEEP DISORDER
     Dosage: 1 MG, 1X/DAY (AT NIGHT)
  4. ZOLOFT [Concomitant]
     Active Substance: SERTRALINE HYDROCHLORIDE
     Indication: DEPRESSED MOOD
     Dosage: 1 DF, 1X/DAY ( AT NIGHT)
  5. LYRICA [Suspect]
     Active Substance: PREGABALIN
     Indication: ROTATOR CUFF SYNDROME
     Dosage: 75 MG, 1X/DAY
     Route: 048
     Dates: start: 2011, end: 2012

REACTIONS (13)
  - Pain in extremity [Unknown]
  - Arthralgia [Unknown]
  - Osteoarthritis [Unknown]
  - Influenza [Unknown]
  - Rotator cuff syndrome [Unknown]
  - Spinal pain [Unknown]
  - Neck pain [Unknown]
  - Chondropathy [Unknown]
  - Pain [Not Recovered/Not Resolved]
  - Off label use [Unknown]
  - Blindness [Unknown]
  - Fibromyalgia [Unknown]
  - Inflammation [Unknown]

NARRATIVE: CASE EVENT DATE: 2011
